FAERS Safety Report 21196573 (Version 1)
Quarter: 2022Q3

REPORT INFORMATION
  Report Type: Report from Study
  Country: MX (occurrence: MX)
  Receive Date: 20220810
  Receipt Date: 20220810
  Transmission Date: 20221027
  Serious: Yes (Other)
  Sender: FDA-Public Use
  Company Number: MX-NOVARTISPH-NVSC2022MX180597

PATIENT
  Sex: Female
  Weight: 64 kg

DRUGS (1)
  1. ENTRESTO [Suspect]
     Active Substance: SACUBITRIL\VALSARTAN
     Indication: Ischaemic cardiomyopathy
     Dosage: 1 DOSAGE FORM, QD (STARTED APPROXIMATELY 6 MONTHS AGO)
     Route: 048

REACTIONS (6)
  - Diabetes mellitus [Unknown]
  - Cardiac disorder [Unknown]
  - Visual impairment [Unknown]
  - Hypertension [Unknown]
  - Gait disturbance [Unknown]
  - Off label use [Unknown]
